FAERS Safety Report 8346746-4 (Version None)
Quarter: 2012Q2

REPORT INFORMATION
  Report Type: 
  Country: None (occurrence: None)
  Receive Date: 20120509
  Receipt Date: 20120501
  Transmission Date: 20120825
  Serious: Yes (Other)
  Sender: FDA-Public Use
  Company Number: US-BAYER-2012-042788

PATIENT
  Sex: Female

DRUGS (1)
  1. MIRENA [Suspect]
     Indication: CONTRACEPTION
     Dosage: 20 MCG/24HR, CONT
     Route: 015
     Dates: start: 20071201

REACTIONS (11)
  - NAUSEA [None]
  - DEPRESSION [None]
  - AMENORRHOEA [None]
  - PREGNANCY WITH CONTRACEPTIVE DEVICE [None]
  - ALOPECIA [None]
  - HEADACHE [None]
  - WEIGHT INCREASED [None]
  - MIGRAINE [None]
  - DECREASED APPETITE [None]
  - VAGINAL HAEMORRHAGE [None]
  - GENITAL HAEMORRHAGE [None]
